FAERS Safety Report 18169104 (Version 2)
Quarter: 2022Q2

REPORT INFORMATION
  Report Type: Spontaneous
  Country: US (occurrence: US)
  Receive Date: 20200819
  Receipt Date: 20220429
  Transmission Date: 20220721
  Serious: No
  Sender: FDA-Public Use
  Company Number: US-PFIZER INC-2020320451

PATIENT
  Age: 64 Year
  Sex: Female
  Weight: 68.49 kg

DRUGS (2)
  1. LYRICA [Suspect]
     Active Substance: PREGABALIN
     Indication: Neuropathy peripheral
     Dosage: 50 MG, 3X/DAY (270 CAPSULE)
     Route: 048
     Dates: start: 20190319, end: 202007
  2. LYRICA [Suspect]
     Active Substance: PREGABALIN
     Indication: Neuralgia
     Dosage: 50 MG, 2X/DAY (50 MG (TAKE 1 CAP (50 MG TOTAL) BY MOUTH 2 TIMES A DAY (180 CAPSULE)
     Route: 048

REACTIONS (3)
  - Pain [Not Recovered/Not Resolved]
  - Limb discomfort [Unknown]
  - Metatarsalgia [Unknown]
